FAERS Safety Report 4973496-4 (Version None)
Quarter: 2006Q2

REPORT INFORMATION
  Report Type: 
  Country: None (occurrence: None)
  Receive Date: 20060407
  Receipt Date: 20060216
  Transmission Date: 20061013
  Serious: Yes (Hospitalization)
  Sender: FDA-Public Use
  Company Number: STA-AE-06-004

PATIENT
  Age: 48 Year
  Sex: Male

DRUGS (1)
  1. LORAZEPAM [Suspect]
     Indication: ALCOHOL WITHDRAWAL SYNDROME
     Dosage: 1070MG IV OVER 7 DAYS

REACTIONS (3)
  - ANION GAP INCREASED [None]
  - BLOOD CREATININE INCREASED [None]
  - SEPSIS [None]
